FAERS Safety Report 8273447-3 (Version None)
Quarter: 2012Q2

REPORT INFORMATION
  Report Type: 
  Country: None (occurrence: None)
  Receive Date: 20120411
  Receipt Date: 20120403
  Transmission Date: 20120825
  Serious: Yes (Other)
  Sender: FDA-Public Use
  Company Number: US-NOVOPROD-349052

PATIENT
  Sex: Female

DRUGS (1)
  1. LEVEMIR [Suspect]
     Indication: DIABETES MELLITUS
     Dosage: UNKNOWN
     Route: 058

REACTIONS (3)
  - SINUS DISORDER [None]
  - NEOPLASM MALIGNANT [None]
  - VISUAL IMPAIRMENT [None]
